FAERS Safety Report 18471949 (Version 1)
Quarter: 2020Q4

REPORT INFORMATION
  Report Type: Other
  Country: CA (occurrence: CA)
  Receive Date: 20201105
  Receipt Date: 20201105
  Transmission Date: 20210114
  Serious: Yes (Other)
  Sender: FDA-Public Use
  Company Number: CA-CELLTRION INC.-2020CA030285

PATIENT

DRUGS (3)
  1. RITUXIMAB (UNKNOWN) [Suspect]
     Active Substance: RITUXIMAB
     Indication: POLYCHONDRITIS
  2. RITUXIMAB (UNKNOWN) [Suspect]
     Active Substance: RITUXIMAB
     Indication: SCLERITIS
  3. RITUXIMAB (UNKNOWN) [Suspect]
     Active Substance: RITUXIMAB
     Indication: UVEITIS
     Route: 042

REACTIONS (12)
  - Neutrophil count increased [Unknown]
  - Immunosuppression [Unknown]
  - White blood cell count increased [Unknown]
  - Back pain [Unknown]
  - Cough [Unknown]
  - Musculoskeletal pain [Unknown]
  - Off label use [Unknown]
  - Intentional product use issue [Unknown]
  - Cataract [Unknown]
  - Glaucoma [Unknown]
  - Arthralgia [Unknown]
  - Eye disorder [Unknown]
